FAERS Safety Report 5613306-5 (Version None)
Quarter: 2008Q1

REPORT INFORMATION
  Report Type: 
  Country: None (occurrence: None)
  Receive Date: 20080129
  Receipt Date: 20080121
  Transmission Date: 20080703
  Serious: Yes (Hospitalization, Other)
  Sender: FDA-Public Use
  Company Number: GXKR2008DE00945

PATIENT
  Sex: Female

DRUGS (1)
  1. CIPROHEXAL (NGX)(CIPROFLOXACIN) FILM-COATED TABLET, 250MG [Suspect]
     Dosage: 250 MG, ORAL
     Route: 048

REACTIONS (7)
  - APHASIA [None]
  - BLOOD URINE PRESENT [None]
  - DYSPNOEA [None]
  - HYPERTENSIVE CRISIS [None]
  - HYPOAESTHESIA [None]
  - PAIN IN EXTREMITY [None]
  - TREMOR [None]
